FAERS Safety Report 6804533-X (Version None)
Quarter: 2010Q2

REPORT INFORMATION
  Report Type: 
  Country: None (occurrence: None)
  Receive Date: 20100628
  Receipt Date: 20100623
  Transmission Date: 20101027
  Serious: Yes (Hospitalization, Disabling, Other)
  Sender: FDA-Public Use
  Company Number: US-MERCK-0705USA02828

PATIENT
  Age: 53 Year
  Sex: Female
  Weight: 82 kg

DRUGS (12)
  1. FOSAMAX [Suspect]
     Indication: OSTEOPOROSIS
     Route: 048
     Dates: start: 20031101, end: 20060101
  2. FOSAMAX [Suspect]
     Route: 048
     Dates: start: 20080226, end: 20080522
  3. CORTICOSTEROIDS (UNSPECIFIED) [Concomitant]
     Route: 065
     Dates: start: 19980101, end: 20040101
  4. [THERAPY UNSPECIFIED] [Concomitant]
     Indication: BLOOD CHOLESTEROL
     Route: 065
     Dates: start: 20020101
  5. [THERAPY UNSPECIFIED] [Concomitant]
     Indication: DIABETES MELLITUS
     Route: 065
     Dates: start: 20000101
  6. KLOR-CON [Concomitant]
     Indication: BLOOD POTASSIUM DECREASED
     Route: 065
     Dates: start: 20000101
  7. PREVACID [Concomitant]
     Indication: GASTROOESOPHAGEAL REFLUX DISEASE
     Route: 065
     Dates: start: 20000101
  8. VYTORIN [Concomitant]
     Indication: BLOOD CHOLESTEROL INCREASED
     Route: 065
     Dates: start: 20020101
  9. AMBIEN [Concomitant]
     Indication: INSOMNIA
     Route: 065
     Dates: start: 20020101, end: 20070101
  10. HYDROCODONE BITARTRATE [Concomitant]
     Indication: PAIN
     Route: 065
     Dates: start: 19980101, end: 20070101
  11. HYDROCODONE BITARTRATE [Concomitant]
     Route: 065
     Dates: start: 19980101, end: 20070101
  12. GABAPENTIN [Concomitant]
     Indication: PAIN
     Route: 065
     Dates: start: 19980101, end: 20070101

REACTIONS (26)
  - ANAEMIA [None]
  - ANXIETY [None]
  - ARTHRALGIA [None]
  - BONE DENSITY DECREASED [None]
  - BRUXISM [None]
  - CARPAL TUNNEL SYNDROME [None]
  - CHEST PAIN [None]
  - CONSTIPATION [None]
  - DENTAL CARIES [None]
  - DIABETES MELLITUS [None]
  - DYSPEPSIA [None]
  - EXOSTOSIS [None]
  - GASTROOESOPHAGEAL REFLUX DISEASE [None]
  - HAEMANGIOMA [None]
  - HYPERTENSION [None]
  - INTERVERTEBRAL DISC PROTRUSION [None]
  - JAW FRACTURE [None]
  - MAJOR DEPRESSION [None]
  - MIGRAINE [None]
  - NAUSEA [None]
  - NECK PAIN [None]
  - OSTEONECROSIS OF JAW [None]
  - OSTEOPOROSIS [None]
  - PAIN [None]
  - TOOTHACHE [None]
  - TREMOR [None]
